FAERS Safety Report 4920869-1 (Version None)
Quarter: 2006Q1

REPORT INFORMATION
  Report Type: 
  Country: None (occurrence: None)
  Receive Date: 20060216
  Receipt Date: 20060208
  Transmission Date: 20060701
  Serious: Yes (Hospitalization, Other)
  Sender: FDA-Public Use
  Company Number: HQWYE302111JAN06

PATIENT
  Age: 52 Year
  Sex: Female

DRUGS (1)
  1. RAPAMUNE [Suspect]
     Indication: PROPHYLAXIS AGAINST TRANSPLANT REJECTION
     Dosage: 4 MG 1X PER 1 DAY ORAL
     Route: 048
     Dates: start: 20030130, end: 20060111

REACTIONS (5)
  - BLOOD CREATINE INCREASED [None]
  - IMPAIRED HEALING [None]
  - KLEBSIELLA INFECTION [None]
  - PYREXIA [None]
  - URINARY TRACT INFECTION [None]
